FAERS Safety Report 5553795-8 (Version None)
Quarter: 2007Q4

REPORT INFORMATION
  Report Type: 
  Country: None (occurrence: None)
  Receive Date: 20071213
  Receipt Date: 20071206
  Transmission Date: 20080405
  Serious: Yes (Other)
  Sender: FDA-Public Use
  Company Number: PHBS2007BE20494

PATIENT
  Sex: Female

DRUGS (2)
  1. DIOVAN [Suspect]
     Indication: HYPERTENSION
     Dosage: 80 MG/DAY
     Route: 048
     Dates: start: 20070401, end: 20070501
  2. DIOVAN [Suspect]
     Dosage: 160 MG/DAY
     Route: 048
     Dates: start: 20070501

REACTIONS (8)
  - ANXIETY [None]
  - CYSTITIS [None]
  - DEPRESSED MOOD [None]
  - FATIGUE [None]
  - HYPERTONIC BLADDER [None]
  - LIMB DISCOMFORT [None]
  - NAUSEA [None]
  - RESTLESS LEGS SYNDROME [None]
